FAERS Safety Report 8465544-4 (Version None)
Quarter: 2012Q2

REPORT INFORMATION
  Report Type: 
  Country: None (occurrence: None)
  Receive Date: 20120626
  Receipt Date: 20120619
  Transmission Date: 20120825
  Serious: No
  Sender: FDA-Public Use
  Company Number: US-PFIZER INC-2012145052

PATIENT
  Sex: Female
  Weight: 54.4 kg

DRUGS (4)
  1. RANITIDINE [Concomitant]
     Dosage: UNK
  2. XANAX [Concomitant]
     Dosage: 1 MG, 3X/DAY
  3. DEPO-ESTRADIOL [Suspect]
     Indication: HORMONE THERAPY
     Dosage: 5 MG/ML, MONTHLY
     Route: 030
  4. PAXIL [Concomitant]
     Dosage: 30 MG, 1X/DAY

REACTIONS (6)
  - OSTEOARTHRITIS [None]
  - PAIN [None]
  - INGROWN HAIR [None]
  - PRURITUS [None]
  - FEELING ABNORMAL [None]
  - SKIN ULCER [None]
